FAERS Safety Report 12658455 (Version 1)
Quarter: 2016Q3

REPORT INFORMATION
  Report Type: Spontaneous
  Country: US (occurrence: US)
  Receive Date: 20160817
  Receipt Date: 20160817
  Transmission Date: 20161109
  Serious: Yes (Other)
  Sender: FDA-Public Use
  Company Number: US-TARO PHARMACEUTICALS USA.,INC-2016SUN00400

PATIENT
  Age: 47 Year
  Sex: Female

DRUGS (28)
  1. PHENYTOIN SODIUM. [Suspect]
     Active Substance: PHENYTOIN SODIUM
     Indication: SEIZURE
     Dosage: 400 MG, AT BEDTIME
     Route: 048
  2. WARFARIN [Interacting]
     Active Substance: WARFARIN
     Dosage: 10 MG, DAILY
     Route: 048
  3. WARFARIN [Interacting]
     Active Substance: WARFARIN
     Dosage: 12.5 MG, DAILY
     Route: 048
  4. WARFARIN [Interacting]
     Active Substance: WARFARIN
     Dosage: 10 MG, DAILY
     Route: 048
  5. METRONIDAZOLE. [Concomitant]
     Active Substance: METRONIDAZOLE
  6. TRAMADOL. [Concomitant]
     Active Substance: TRAMADOL
  7. WARFARIN [Interacting]
     Active Substance: WARFARIN
     Dosage: 5 MG, DAILY
     Route: 048
  8. WARFARIN [Interacting]
     Active Substance: WARFARIN
     Dosage: 10 MG, DAILY
     Route: 048
  9. WARFARIN [Interacting]
     Active Substance: WARFARIN
     Dosage: 5 MG, DAILY
     Route: 048
  10. WARFARIN [Interacting]
     Active Substance: WARFARIN
     Dosage: 15 MG, DAILY
     Route: 048
  11. ATENOLOL. [Concomitant]
     Active Substance: ATENOLOL
  12. DULOXETINE. [Concomitant]
     Active Substance: DULOXETINE
  13. ACETAMINOPHEN. [Concomitant]
     Active Substance: ACETAMINOPHEN
  14. WARFARIN [Interacting]
     Active Substance: WARFARIN
     Dosage: 10 MG, DAILY
     Route: 048
  15. CIPROFLOXACIN. [Concomitant]
     Active Substance: CIPROFLOXACIN
  16. MIRTAZAPINE. [Concomitant]
     Active Substance: MIRTAZAPINE
  17. WARFARIN [Interacting]
     Active Substance: WARFARIN
     Dosage: 7.5 MG, DAILY
     Route: 048
  18. WARFARIN [Interacting]
     Active Substance: WARFARIN
     Dosage: 12.5 MG, DAILY
     Route: 048
  19. WARFARIN [Interacting]
     Active Substance: WARFARIN
     Dosage: 12.5 MG, DAILY
     Route: 048
  20. FLUOXETINE [Concomitant]
     Active Substance: FLUOXETINE HYDROCHLORIDE
  21. WARFARIN [Interacting]
     Active Substance: WARFARIN
     Indication: DEEP VEIN THROMBOSIS
     Dosage: 10 MG, DAILY
     Route: 048
  22. WARFARIN [Interacting]
     Active Substance: WARFARIN
     Dosage: 12.5 MG, DAILY
     Route: 048
  23. ESOMEPRAZOLE [Concomitant]
     Active Substance: ESOMEPRAZOLE
  24. SERTRALINE [Concomitant]
     Active Substance: SERTRALINE HYDROCHLORIDE
  25. WARFARIN [Interacting]
     Active Substance: WARFARIN
     Dosage: 10 MG, DAILY
     Route: 048
  26. WARFARIN [Interacting]
     Active Substance: WARFARIN
     Dosage: 10 MG, DAILY
     Route: 048
  27. ENOXAPARIN [Concomitant]
     Active Substance: ENOXAPARIN
     Dosage: 60 MG, EVERY 12 HOURS
     Route: 058
  28. TRAZODONE [Concomitant]
     Active Substance: TRAZODONE HYDROCHLORIDE

REACTIONS (7)
  - International normalised ratio fluctuation [Recovering/Resolving]
  - Blood alkaline phosphatase increased [Unknown]
  - Gamma-glutamyltransferase increased [Unknown]
  - Alanine aminotransferase increased [Unknown]
  - Purple glove syndrome [Recovering/Resolving]
  - Drug interaction [Recovered/Resolved]
  - Aspartate aminotransferase increased [Unknown]
